FAERS Safety Report 5351356-7 (Version None)
Quarter: 2007Q2

REPORT INFORMATION
  Report Type: 
  Country: None (occurrence: None)
  Receive Date: 20070608
  Receipt Date: 20070530
  Transmission Date: 20071010
  Serious: Yes (Other)
  Sender: FDA-Public Use
  Company Number: US-PFIZER INC-2007045144

PATIENT
  Sex: Female
  Weight: 66 kg

DRUGS (6)
  1. CHANTIX [Suspect]
     Indication: SMOKING CESSATION THERAPY
     Dates: start: 20070401, end: 20070523
  2. NEULASTA [Suspect]
  3. PROVIGIL [Concomitant]
  4. METHADONE HCL [Concomitant]
  5. LORAZEPAM [Concomitant]
  6. NEXIUM [Concomitant]

REACTIONS (3)
  - BONE PAIN [None]
  - BREAST CANCER [None]
  - FEELING ABNORMAL [None]
